FAERS Safety Report 13263269 (Version 1)
Quarter: 2017Q1

REPORT INFORMATION
  Report Type: Spontaneous
  Country: GB (occurrence: GB)
  Receive Date: 20170223
  Receipt Date: 20170223
  Transmission Date: 20170428
  Serious: Yes (Hospitalization)
  Sender: FDA-Public Use
  Company Number: GB-AUROBINDO-AUR-APL-2017-29841

PATIENT
  Age: 29 Year

DRUGS (4)
  1. LANSOPRAZOLE. [Concomitant]
     Active Substance: LANSOPRAZOLE
     Indication: PRODUCT USED FOR UNKNOWN INDICATION
     Dosage: 30 MG, ONCE A DAY
     Route: 048
  2. QUETIAPINE 150MG [Suspect]
     Active Substance: QUETIAPINE
     Indication: PSYCHOTIC DISORDER
     Dosage: 150 MG, ONCE A DAY, AT NIGHT
     Route: 048
     Dates: start: 20161205
  3. TRAZODONE [Concomitant]
     Active Substance: TRAZODONE HYDROCHLORIDE
     Indication: PRODUCT USED FOR UNKNOWN INDICATION
     Dosage: 200 MG, ONCE A DAY, EVERY NIGHT
     Route: 048
  4. FLUCONAZOLE 50MG [Suspect]
     Active Substance: FLUCONAZOLE
     Indication: FUNGAL SKIN INFECTION
     Dosage: 50 MG, ONCE A DAY
     Route: 048
     Dates: start: 20170114, end: 20170117

REACTIONS (2)
  - Pancreatitis [Not Recovered/Not Resolved]
  - Abdominal pain [Unknown]

NARRATIVE: CASE EVENT DATE: 201701
